FAERS Safety Report 8499036-3 (Version None)
Quarter: 2012Q3

REPORT INFORMATION
  Report Type: 
  Country: None (occurrence: None)
  Receive Date: 20120710
  Receipt Date: 20120625
  Transmission Date: 20120928
  Serious: Yes (Other)
  Sender: FDA-Public Use
  Company Number: IT-RANBAXY-2012RR-57221

PATIENT
  Age: 62 Year
  Sex: Female

DRUGS (3)
  1. PRAMIPEXOLE DIHYCHLORIDE [Suspect]
     Indication: PARKINSON'S DISEASE
     Dosage: 2.1 MG/DAY
     Route: 065
  2. SELEGILINE [Suspect]
     Indication: PARKINSON'S DISEASE
     Dosage: 10 MG/DAY
     Route: 065
  3. SERTRALINE HYDROCHLORIDE [Suspect]
     Indication: PATHOLOGICAL GAMBLING
     Dosage: 50 MG/ DAY
     Route: 065

REACTIONS (2)
  - PATHOLOGICAL GAMBLING [None]
  - CONDITION AGGRAVATED [None]
